FAERS Safety Report 11798156 (Version 1)
Quarter: 2015Q4

REPORT INFORMATION
  Report Type: Spontaneous
  Country: US (occurrence: US)
  Receive Date: 20151203
  Receipt Date: 20151203
  Transmission Date: 20160305
  Serious: Yes (Disabling, Other)
  Sender: FDA-Public Use
  Company Number: US-JNJFOC-20151120259

PATIENT
  Age: 28 Year
  Sex: Female

DRUGS (5)
  1. HYDROCODONE [Concomitant]
     Active Substance: HYDROCODONE
     Indication: PAIN
     Route: 065
  2. LEVOFLOXACIN. [Suspect]
     Active Substance: LEVOFLOXACIN
     Indication: SINUSITIS
     Dosage: 7 DAY COURSE
     Route: 065
  3. LEVOFLOXACIN. [Suspect]
     Active Substance: LEVOFLOXACIN
     Indication: SINUS OPERATION
     Dosage: 10 DAY COURSE
     Route: 065
  4. LEVOFLOXACIN. [Suspect]
     Active Substance: LEVOFLOXACIN
     Indication: SINUS OPERATION
     Dosage: 7 DAY COURSE
     Route: 065
  5. LEVOFLOXACIN. [Suspect]
     Active Substance: LEVOFLOXACIN
     Indication: SINUSITIS
     Dosage: 10 DAY COURSE
     Route: 065

REACTIONS (26)
  - Musculoskeletal pain [Not Recovered/Not Resolved]
  - Peripheral coldness [Not Recovered/Not Resolved]
  - Blood glucose fluctuation [Unknown]
  - Muscle spasms [Unknown]
  - Bedridden [Unknown]
  - Cognitive disorder [Not Recovered/Not Resolved]
  - Neuropathy peripheral [Not Recovered/Not Resolved]
  - Autonomic nervous system imbalance [Not Recovered/Not Resolved]
  - Gastrointestinal disorder [Not Recovered/Not Resolved]
  - Tendon disorder [Unknown]
  - Food allergy [Unknown]
  - Cardiovascular autonomic function test abnormal [Unknown]
  - Sensory disturbance [Not Recovered/Not Resolved]
  - Muscular weakness [Not Recovered/Not Resolved]
  - Dyspnoea [Unknown]
  - Visual impairment [Unknown]
  - Fatigue [Unknown]
  - Tendon pain [Not Recovered/Not Resolved]
  - Confusional state [Not Recovered/Not Resolved]
  - Muscle contractions involuntary [Unknown]
  - Mental disorder [Unknown]
  - Sleep disorder [Not Recovered/Not Resolved]
  - Dysstasia [Unknown]
  - Affective disorder [Not Recovered/Not Resolved]
  - Muscle atrophy [Unknown]
  - Allergy to chemicals [Unknown]
